FAERS Safety Report 9154391 (Version 3)
Quarter: 2013Q4

REPORT INFORMATION
  Report Type: Report from Study
  Country: US (occurrence: US)
  Receive Date: 20130311
  Receipt Date: 20131205
  Transmission Date: 20140711
  Serious: Yes (Hospitalization, Other)
  Sender: FDA-Public Use
  Company Number: US-PFIZER INC-2011169645

PATIENT
  Age: 60 Year
  Sex: Female
  Weight: 79.37 kg

DRUGS (8)
  1. NEURONTIN [Suspect]
     Indication: MULTIPLE SCLEROSIS
     Dosage: 800MG EVERY TWO HOURS STARTING FROM 12 O^CLOCK NOON TO 9 PM
     Route: 048
  2. NEURONTIN [Suspect]
     Indication: PAIN
     Dosage: 800MG THREE TIMES AM, 1200MG ONE TIME PM
     Route: 048
     Dates: start: 2007
  3. NEURONTIN [Suspect]
     Indication: TRIGEMINAL NEURALGIA
     Dosage: 2800 MG, DAILY
     Route: 048
     Dates: start: 20120720
  4. LYRICA [Suspect]
     Indication: TRIGEMINAL NEURALGIA
     Dosage: 675 MG, DAILY
     Route: 048
  5. LYRICA [Suspect]
     Dosage: 600 MG, DAILY
     Route: 048
     Dates: start: 20060824
  6. LYRICA [Suspect]
     Dosage: 400 MG, 3X/DAY
     Route: 048
     Dates: start: 2007
  7. HYDROCORTISONE [Suspect]
     Indication: PITUITARY TUMOUR BENIGN
     Dosage: 20 MG DAILY
     Route: 048
  8. SYNTHROID [Suspect]
     Indication: PITUITARY TUMOUR BENIGN
     Dosage: 25 UG, DAILY
     Route: 048

REACTIONS (18)
  - Dyspnoea [Not Recovered/Not Resolved]
  - Oedema mouth [Not Recovered/Not Resolved]
  - Lip swelling [Not Recovered/Not Resolved]
  - Swollen tongue [Not Recovered/Not Resolved]
  - Lip swelling [Not Recovered/Not Resolved]
  - Pharyngeal oedema [Not Recovered/Not Resolved]
  - Dysphagia [Not Recovered/Not Resolved]
  - Dyspnoea [Not Recovered/Not Resolved]
  - Nervous system disorder [Unknown]
  - Multiple sclerosis [Unknown]
  - Trigeminal neuralgia [Unknown]
  - Myalgia [Unknown]
  - Off label use [Unknown]
  - Drug ineffective for unapproved indication [Unknown]
  - Pruritus [Not Recovered/Not Resolved]
  - Insomnia [Unknown]
  - Therapeutic response unexpected [Unknown]
  - Drug ineffective [Unknown]
